FAERS Safety Report 10241855 (Version 1)
Quarter: 2014Q2

REPORT INFORMATION
  Report Type: Spontaneous
  Country: US (occurrence: US)
  Receive Date: 20140617
  Receipt Date: 20140617
  Transmission Date: 20141212
  Serious: Yes (Hospitalization)
  Sender: FDA-Public Use
  Company Number: US-GLAXOSMITHKLINE-A1076988A

PATIENT
  Sex: Female

DRUGS (1)
  1. VOTRIENT [Suspect]
     Indication: PRODUCT USED FOR UNKNOWN INDICATION
     Route: 048

REACTIONS (7)
  - Adverse drug reaction [Unknown]
  - Headache [Unknown]
  - Epistaxis [Unknown]
  - Abdominal pain upper [Unknown]
  - Nausea [Unknown]
  - Vision blurred [Unknown]
  - Vomiting [Unknown]
